FAERS Safety Report 6047103-6 (Version None)
Quarter: 2009Q1

REPORT INFORMATION
  Report Type: 
  Country: None (occurrence: None)
  Receive Date: 20090122
  Receipt Date: 20090120
  Transmission Date: 20090719
  Serious: Yes (Other)
  Sender: FDA-Public Use
  Company Number: GB-JNJCH-2009001638

PATIENT
  Age: 16 Year
  Sex: Male
  Weight: 50.2 kg

DRUGS (3)
  1. BOOTS NICASSIST 15 MG PATCH [Suspect]
     Indication: SMOKING CESSATION THERAPY
     Route: 062
     Dates: start: 20081217, end: 20081217
  2. BECLAZONE [Concomitant]
     Indication: ASTHMA
     Dosage: TEXT:2/ 1DAYS
     Route: 055
  3. VENTOLIN [Concomitant]
     Indication: ASTHMA
     Dosage: TEXT:AS NECESSARY
     Route: 055

REACTIONS (5)
  - DIZZINESS [None]
  - DYSSTASIA [None]
  - HEADACHE [None]
  - MALAISE [None]
  - VOMITING [None]
